FAERS Safety Report 7578023-3 (Version None)
Quarter: 2011Q2

REPORT INFORMATION
  Report Type: 
  Country: None (occurrence: None)
  Receive Date: 20110628
  Receipt Date: 20110617
  Transmission Date: 20111010
  Serious: Yes (Hospitalization, Other)
  Sender: FDA-Public Use
  Company Number: JP-CELGENEUS-087-21880-10121088

PATIENT
  Sex: Female

DRUGS (37)
  1. REVLIMID [Suspect]
     Indication: MULTIPLE MYELOMA
     Dosage: 25 MILLIGRAM
     Route: 048
     Dates: start: 20100729, end: 20100819
  2. DECADRON [Concomitant]
     Dosage: 1 MILLIGRAM
     Route: 048
     Dates: start: 20100904, end: 20100907
  3. DEXAMETHASONE SODIUM PHOSPHATE [Concomitant]
     Dosage: 0.5A
     Route: 041
     Dates: start: 20100804, end: 20100809
  4. DEXAMETHASONE SODIUM PHOSPHATE [Concomitant]
     Dosage: 33 MILLIGRAM
     Route: 041
     Dates: start: 20100903, end: 20100903
  5. AMITRIPTYLINE HCL [Concomitant]
     Dosage: 50 MILLIGRAM
     Route: 048
     Dates: start: 20101001, end: 20110210
  6. KARY UNI [Concomitant]
     Indication: PROPHYLAXIS
     Dosage: QL
     Route: 047
     Dates: start: 20100825, end: 20100825
  7. VALGANCICLOVIR [Concomitant]
     Indication: PROPHYLAXIS
     Dosage: 900 MILLIGRAM
     Route: 048
     Dates: start: 20100917, end: 20100918
  8. REVLIMID [Suspect]
     Dosage: 10 MILLIGRAM
     Route: 048
     Dates: start: 20110113, end: 20110203
  9. DEXAMETHASONE SODIUM PHOSPHATE [Concomitant]
     Dosage: 33 MILLIGRAM
     Route: 041
     Dates: start: 20100827, end: 20100827
  10. ASPIRIN [Concomitant]
     Dosage: 100 MILLIGRAM
     Route: 048
     Dates: start: 20101001, end: 20101201
  11. BISOLVON [Concomitant]
     Indication: PROPHYLAXIS
     Dosage: QL
     Route: 055
     Dates: start: 20100724, end: 20100724
  12. OXYCONTIN [Concomitant]
     Dosage: 20 MILLIGRAM
     Route: 048
     Dates: start: 20100802, end: 20100808
  13. OXYCONTIN [Concomitant]
     Dosage: 10 MILLIGRAM
     Route: 048
     Dates: start: 20100827, end: 20100924
  14. DEXAMETHASONE [Suspect]
     Indication: MULTIPLE MYELOMA
     Dosage: 4 MILLIGRAM
     Route: 048
     Dates: start: 20110113, end: 20110210
  15. OMEPRAZON [Concomitant]
     Indication: PROPHYLAXIS
     Dosage: 20 MILLIGRAM
     Route: 048
     Dates: start: 20100729, end: 20100924
  16. ZOMETA [Concomitant]
     Indication: PROPHYLAXIS
     Dosage: 4 MILLIGRAM
     Route: 041
     Dates: start: 20100820, end: 20100820
  17. REVLIMID [Suspect]
     Dosage: 10 MILLIGRAM
     Route: 048
     Dates: start: 20101101, end: 20101121
  18. MAGNESIUM SULFATE [Concomitant]
     Indication: PROPHYLAXIS
     Dosage: 1500 MILLIGRAM
     Route: 048
     Dates: start: 20100729, end: 20100924
  19. OXYCONTIN [Concomitant]
     Indication: MULTIPLE MYELOMA
     Dosage: 30 MILLIGRAM
     Route: 048
     Dates: start: 20100726, end: 20100801
  20. OXYCONTIN [Concomitant]
     Dosage: 15 MILLIGRAM
     Route: 048
     Dates: start: 20100809, end: 20100815
  21. DEXAMETHASONE SODIUM PHOSPHATE [Concomitant]
     Indication: MULTIPLE MYELOMA
     Dosage: 4A
     Route: 041
     Dates: start: 20100730, end: 20100730
  22. OXYCONTIN [Concomitant]
     Dosage: 10 MILLIGRAM
     Route: 048
     Dates: start: 20101004, end: 20110210
  23. ALLOID G [Concomitant]
     Indication: PROPHYLAXIS
     Dosage: 60 MILLILITER
     Route: 048
     Dates: start: 20101213, end: 20101226
  24. DECADRON [Concomitant]
     Dosage: 1 MILLIGRAM
     Route: 048
     Dates: start: 20100820, end: 20100902
  25. DECADRON [Concomitant]
     Dosage: 1 MILLIGRAM
     Route: 048
     Dates: start: 20101004, end: 20110112
  26. MAGNESIUM SULFATE [Concomitant]
     Dosage: 1500 MILLIGRAM
     Route: 048
     Dates: start: 20101005, end: 20101031
  27. AMITRIPTYLINE HCL [Concomitant]
     Dosage: 50 MILLIGRAM
     Route: 048
     Dates: start: 20100729, end: 20100924
  28. REVLIMID [Suspect]
     Dosage: 15 MILLIGRAM
     Route: 048
     Dates: start: 20100908, end: 20100914
  29. DECADRON [Concomitant]
     Indication: MULTIPLE MYELOMA
     Dosage: 4 MILLIGRAM
     Route: 048
     Dates: start: 20100810, end: 20100819
  30. DEXAMETHASONE SODIUM PHOSPHATE [Concomitant]
     Dosage: 0.5A
     Route: 041
     Dates: start: 20100731, end: 20100803
  31. OMEPRAZON [Concomitant]
     Dosage: 20 MILLIGRAM
     Route: 048
     Dates: start: 20101004, end: 20110210
  32. KARY UNI [Concomitant]
     Dosage: QL
     Route: 047
     Dates: start: 20100827, end: 20100924
  33. KARY UNI [Concomitant]
     Dosage: QL
     Route: 047
     Dates: start: 20101004, end: 20101215
  34. REVLIMID [Suspect]
     Dosage: 25 MILLIGRAM
     Route: 048
     Dates: start: 20100827, end: 20100906
  35. REVLIMID [Suspect]
     Dosage: 10 MILLIGRAM
     Route: 048
     Dates: start: 20101004, end: 20101025
  36. ASPIRIN [Concomitant]
     Indication: PROPHYLAXIS
     Dosage: 100 MILLIGRAM
     Route: 048
     Dates: start: 20100729, end: 20100924
  37. OXYCONTIN [Concomitant]
     Dosage: 10 MILLIGRAM
     Route: 048
     Dates: start: 20100816, end: 20100822

REACTIONS (11)
  - DUODENAL ULCER [None]
  - PLATELET COUNT DECREASED [None]
  - PHARYNGITIS [None]
  - STOMATITIS [None]
  - CONSTIPATION [None]
  - WHITE BLOOD CELL COUNT DECREASED [None]
  - DECUBITUS ULCER [None]
  - GASTRIC ULCER [None]
  - HYPOKALAEMIA [None]
  - PNEUMONIA [None]
  - LEUKOPENIA [None]
